FAERS Safety Report 7595774-5 (Version None)
Quarter: 2011Q3

REPORT INFORMATION
  Report Type: 
  Country: None (occurrence: None)
  Receive Date: 20110707
  Receipt Date: 20110629
  Transmission Date: 20111222
  Serious: Yes (Other)
  Sender: FDA-Public Use
  Company Number: US-PFIZER INC-2011145842

PATIENT
  Sex: Female
  Weight: 70.295 kg

DRUGS (9)
  1. VICODIN [Concomitant]
     Indication: BACK PAIN
     Dosage: UNK
     Route: 048
     Dates: start: 20000301, end: 20000601
  2. CELEBREX [Suspect]
     Indication: BACK PAIN
     Dosage: 200 MG, DAILY
     Route: 048
     Dates: start: 20000301, end: 20021201
  3. ADVIL LIQUI-GELS [Concomitant]
     Indication: NECK PAIN
  4. CELEBREX [Suspect]
     Indication: NECK PAIN
  5. ADVIL LIQUI-GELS [Concomitant]
     Indication: BACK PAIN
     Dosage: UNK
     Route: 048
     Dates: start: 20000301, end: 20000601
  6. WELLBUTRIN [Concomitant]
     Indication: NEURALGIA
     Dosage: UNK
     Route: 048
     Dates: start: 20000301, end: 20000601
  7. VICODIN [Concomitant]
     Indication: NECK PAIN
  8. OXYCONTIN [Concomitant]
     Indication: BACK PAIN
     Dosage: UNK
     Route: 048
     Dates: start: 20000601
  9. OXYCONTIN [Concomitant]
     Indication: NECK PAIN

REACTIONS (3)
  - ABDOMINAL PAIN UPPER [None]
  - INAPPROPRIATE SCHEDULE OF DRUG ADMINISTRATION [None]
  - THROMBOSIS [None]
